FAERS Safety Report 8387980-7 (Version None)
Quarter: 2012Q2

REPORT INFORMATION
  Report Type: 
  Country: None (occurrence: None)
  Receive Date: 20120525
  Receipt Date: 20120522
  Transmission Date: 20120825
  Serious: Yes (Death)
  Sender: FDA-Public Use
  Company Number: PHHO2012HK007713

PATIENT
  Sex: Male
  Weight: 77.2 kg

DRUGS (8)
  1. ENALAPRIL MALEATE [Suspect]
     Indication: CARDIAC FAILURE CHRONIC
     Dosage: 10 MG, BID
     Route: 048
     Dates: start: 20110407
  2. FAMOTIDINE [Suspect]
     Indication: PROPHYLAXIS
     Dosage: 40 MG, BID
     Route: 048
     Dates: start: 20090116
  3. SIMVASTATIN [Suspect]
     Indication: HYPERLIPIDAEMIA
     Dosage: 10 MG, NOCTE
     Route: 048
     Dates: start: 20081203
  4. SENOKOT [Suspect]
     Indication: CONSTIPATION
     Dosage: 15 MG, NOCTE
     Route: 048
     Dates: start: 20090512
  5. CARVEDILOL [Suspect]
     Indication: CARDIAC FAILURE
     Dosage: 6.25 MG, BID
     Route: 048
     Dates: start: 20110323
  6. VITAMIN B-12 [Suspect]
     Indication: VITAMIN B12 DEFICIENCY
     Dosage: 50 MG, BID
     Route: 048
     Dates: start: 20080319
  7. FUROSEMIDE [Suspect]
     Indication: CARDIAC FAILURE
     Dosage: 40 MG, QD
     Route: 048
     Dates: start: 20110310
  8. DIAMICRON [Suspect]
     Indication: DIABETES MELLITUS
     Dosage: 80 MG, QD
     Route: 048
     Dates: start: 20100717

REACTIONS (1)
  - DEATH [None]
